FAERS Safety Report 7339044-9 (Version None)
Quarter: 2011Q1

REPORT INFORMATION
  Report Type: 
  Country: None (occurrence: None)
  Receive Date: 20110308
  Receipt Date: 20110223
  Transmission Date: 20110831
  Serious: No
  Sender: FDA-Public Use
  Company Number: US-ELI_LILLY_AND_COMPANY-US201102007630

PATIENT
  Sex: Male

DRUGS (1)
  1. CIALIS [Suspect]
     Indication: ERECTILE DYSFUNCTION
     Dosage: 10 MG, AS NEEDED

REACTIONS (5)
  - VISUAL IMPAIRMENT [None]
  - DYSPEPSIA [None]
  - HEADACHE [None]
  - MALAISE [None]
  - ABDOMINAL DISCOMFORT [None]
